FAERS Safety Report 7852797-6 (Version None)
Quarter: 2011Q4

REPORT INFORMATION
  Report Type: 
  Country: None (occurrence: None)
  Receive Date: 20111026
  Receipt Date: 20111017
  Transmission Date: 20120403
  Serious: Yes (Hospitalization, Other)
  Sender: FDA-Public Use
  Company Number: US-ASTRAZENECA-2011SE48844

PATIENT
  Age: 56 Year
  Sex: Male

DRUGS (25)
  1. VANDETANIB [Suspect]
     Indication: THYROID CANCER
     Route: 048
     Dates: start: 20110812
  2. VANDETANIB [Suspect]
     Route: 048
  3. GLUCOSAMINE/CHONDROITIN [Concomitant]
     Dosage: TWO TABLETS DAILY
  4. TRAMADOL HCL [Concomitant]
  5. PRILOSEC [Suspect]
     Route: 048
  6. MUCINEX D [Concomitant]
     Route: 048
  7. ZONISAMIDE [Concomitant]
     Route: 048
  8. PROZAC [Concomitant]
  9. LOVAZA [Concomitant]
     Route: 048
  10. WELLBUTRIN [Concomitant]
  11. MELATONIN [Concomitant]
     Route: 048
  12. MULTIVITAMIN AND MINERAL [Concomitant]
     Dosage: ONE TABLET DAILY
     Route: 048
  13. ZOMETA [Concomitant]
     Dosage: AS PREVIOUSLY
  14. ASCORBIC ACID [Concomitant]
     Route: 048
  15. CITRACAL PLUS D [Concomitant]
     Dosage: TWO TABLETS DAILY
  16. PANTOTHENIC ACID [Concomitant]
     Route: 048
  17. CALCIUM MAGNESIUM [Concomitant]
     Dosage: 333-133 MG DAILY
     Route: 048
  18. ALLEGRA D 24 HOUR [Concomitant]
     Dosage: 60-120 MG DAILY
     Route: 048
  19. LIDODERM [Concomitant]
     Dosage: ONE PATCH EVERY 12 HOURS
     Route: 062
  20. COLACE [Concomitant]
     Route: 048
  21. SYNTHROID [Concomitant]
  22. LECITHIN [Concomitant]
     Route: 048
  23. VANDETANIB [Suspect]
     Route: 048
  24. KLONOPIN [Concomitant]
  25. ALLEGRA D 24 HOUR [Concomitant]
     Dosage: ONE TABLET TWO TIMES A DAY

REACTIONS (12)
  - HEPATIC LESION [None]
  - METABOLIC ENCEPHALOPATHY [None]
  - TRACHEAL STENOSIS [None]
  - THYROID CANCER [None]
  - SPINAL COLUMN STENOSIS [None]
  - GASTROOESOPHAGEAL REFLUX DISEASE [None]
  - HAND FRACTURE [None]
  - OSTEOLYSIS [None]
  - METASTASES TO BONE [None]
  - DYSPHEMIA [None]
  - MEMORY IMPAIRMENT [None]
  - CONTUSION [None]
